FAERS Safety Report 20024454 (Version 1)
Quarter: 2021Q4

REPORT INFORMATION
  Report Type: Report from Study
  Country: US (occurrence: US)
  Receive Date: 20211102
  Receipt Date: 20211102
  Transmission Date: 20220303
  Serious: Yes (Hospitalization)
  Sender: FDA-Public Use
  Company Number: US-SHIRE-US202016962

PATIENT
  Sex: Male

DRUGS (8)
  1. TEDUGLUTIDE [Suspect]
     Active Substance: TEDUGLUTIDE
     Indication: Short-bowel syndrome
     Dosage: 1.525 MILLIGRAM, QD
     Route: 058
     Dates: start: 20190222
  2. TEDUGLUTIDE [Suspect]
     Active Substance: TEDUGLUTIDE
     Indication: Short-bowel syndrome
     Dosage: 1.525 MILLIGRAM, QD
     Route: 058
     Dates: start: 20190222
  3. TEDUGLUTIDE [Suspect]
     Active Substance: TEDUGLUTIDE
     Indication: Short-bowel syndrome
     Dosage: 1.525 MILLIGRAM, QD
     Route: 058
     Dates: start: 20190222
  4. TEDUGLUTIDE [Suspect]
     Active Substance: TEDUGLUTIDE
     Indication: Short-bowel syndrome
     Dosage: 1.525 MILLIGRAM, QD
     Route: 058
     Dates: start: 20190222
  5. TEDUGLUTIDE [Suspect]
     Active Substance: TEDUGLUTIDE
     Dosage: 1.525 MILLIGRAM, QD
     Route: 058
     Dates: start: 20190221
  6. TEDUGLUTIDE [Suspect]
     Active Substance: TEDUGLUTIDE
     Dosage: 1.525 MILLIGRAM, QD
     Route: 058
     Dates: start: 20190221
  7. TEDUGLUTIDE [Suspect]
     Active Substance: TEDUGLUTIDE
     Dosage: 1.525 MILLIGRAM, QD
     Route: 058
     Dates: start: 20190221
  8. TEDUGLUTIDE [Suspect]
     Active Substance: TEDUGLUTIDE
     Dosage: 1.525 MILLIGRAM, QD
     Route: 058
     Dates: start: 20190221

REACTIONS (2)
  - Dehydration [Unknown]
  - Off label use [Unknown]
